FAERS Safety Report 4747998-X (Version None)
Quarter: 2005Q3

REPORT INFORMATION
  Report Type: 
  Country: None (occurrence: None)
  Receive Date: 20050818
  Receipt Date: 20050714
  Transmission Date: 20060218
  Serious: Yes (Other)
  Sender: FDA-Public Use
  Company Number: DE-BRISTOL-MYERS SQUIBB COMPANY-13040274

PATIENT
  Age: 46 Year
  Sex: Male

DRUGS (1)
  1. REYATAZ [Suspect]
     Indication: HIV INFECTION
     Dates: start: 20050201, end: 20050801

REACTIONS (2)
  - GRANULOMATOUS LIVER DISEASE [None]
  - HEPATIC ENZYME INCREASED [None]
